FAERS Safety Report 5970030-7 (Version None)
Quarter: 2008Q4

REPORT INFORMATION
  Report Type: 
  Country: None (occurrence: None)
  Receive Date: 20081126
  Receipt Date: 20081120
  Transmission Date: 20090506
  Serious: Yes (Other)
  Sender: FDA-Public Use
  Company Number: JP-MERCK-0811USA01458

PATIENT
  Age: 77 Year
  Sex: Male

DRUGS (4)
  1. PEPCID RPD [Suspect]
     Route: 048
     Dates: start: 20080109, end: 20081006
  2. SIGMART [Suspect]
     Route: 065
  3. RISPERDAL [Suspect]
     Route: 065
  4. TETRAMIDE [Suspect]
     Route: 065

REACTIONS (1)
  - LIVER DISORDER [None]
